FAERS Safety Report 5414720-3 (Version None)
Quarter: 2007Q3

REPORT INFORMATION
  Report Type: 
  Country: None (occurrence: None)
  Receive Date: 20070713
  Receipt Date: 20070502
  Transmission Date: 20080115
  Serious: Yes (Hospitalization)
  Sender: FDA-Public Use
  Company Number: US-JNJFOC-20070300514

PATIENT
  Age: 32 Year
  Sex: Female
  Weight: 83.2 kg

DRUGS (7)
  1. ORTHO EVRA [Suspect]
     Indication: CONTRACEPTION
     Dosage: TRANSDERMAL
     Route: 062
     Dates: start: 20021201
  2. LITHIUM CARBONATE [Concomitant]
  3. EFFEXOR [Concomitant]
  4. TOPAMAX [Concomitant]
  5. TEMAZEPAM [Concomitant]
  6. MIRTAZAPINE [Concomitant]
  7. RISPERIDONE [Concomitant]

REACTIONS (2)
  - DEEP VEIN THROMBOSIS [None]
  - PULMONARY EMBOLISM [None]
